FAERS Safety Report 10134181 (Version 1)
Quarter: 2014Q2

REPORT INFORMATION
  Report Type: Spontaneous
  Country: US (occurrence: US)
  Receive Date: 20140428
  Receipt Date: 20140428
  Transmission Date: 20141212
  Serious: No
  Sender: FDA-Public Use
  Company Number: US-SANOFI-AVENTIS-2013SA076343

PATIENT
  Age: 28 Year
  Sex: Male

DRUGS (1)
  1. ALLEGRA [Suspect]
     Indication: SEASONAL ALLERGY
     Dosage: 1 TAB, 1/2 TABLET AND 1/4 TABLET.
     Route: 048
     Dates: start: 201304

REACTIONS (2)
  - Withdrawal syndrome [Not Recovered/Not Resolved]
  - Wrong technique in drug usage process [Unknown]
